FAERS Safety Report 25537505 (Version 2)
Quarter: 2025Q3

REPORT INFORMATION
  Report Type: Report from Study
  Country: EU (occurrence: EU)
  Receive Date: 20250710
  Receipt Date: 20250715
  Transmission Date: 20251020
  Serious: Yes (Death, Other)
  Sender: AVERITAS
  Company Number: EU-CHUBR-202500124

PATIENT
  Age: 63 Year
  Sex: Female

DRUGS (1)
  1. NALOXEGOL OXALATE [Suspect]
     Active Substance: NALOXEGOL OXALATE
     Indication: Gastrointestinal motility disorder
     Route: 065
     Dates: start: 20250619, end: 20250627

REACTIONS (4)
  - Pneumonia aspiration [Fatal]
  - Acute respiratory distress syndrome [Fatal]
  - Intracranial pressure increased [Fatal]
  - Pulmonary embolism [Fatal]

NARRATIVE: CASE EVENT DATE: 20250618
